FAERS Safety Report 12092241 (Version 1)
Quarter: 2016Q1

REPORT INFORMATION
  Report Type: Spontaneous
  Country: US (occurrence: US)
  Receive Date: 20160219
  Receipt Date: 20160219
  Transmission Date: 20160526
  Serious: No
  Sender: FDA-Public Use
  Company Number: US-ALLERGAN-1517019US

PATIENT
  Age: 43 Year
  Sex: Female
  Weight: 77.98 kg

DRUGS (5)
  1. FML FORTE [Suspect]
     Active Substance: FLUOROMETHOLONE
     Indication: EYE IRRITATION
     Dosage: UNK
     Route: 047
     Dates: start: 2015, end: 201506
  2. FML [Suspect]
     Active Substance: FLUOROMETHOLONE
     Indication: EYE IRRITATION
     Dosage: UNK
     Route: 047
     Dates: start: 2015, end: 201506
  3. RESTASIS [Concomitant]
     Active Substance: CYCLOSPORINE
     Indication: DRY EYE
     Dosage: UNK
     Dates: start: 2013
  4. FML FORTE [Suspect]
     Active Substance: FLUOROMETHOLONE
     Indication: PAIN
  5. FML [Suspect]
     Active Substance: FLUOROMETHOLONE
     Indication: PAIN

REACTIONS (2)
  - Drug ineffective [Unknown]
  - Dysgeusia [Unknown]

NARRATIVE: CASE EVENT DATE: 2015
